FAERS Safety Report 9199023 (Version 1)
Quarter: 2013Q1

REPORT INFORMATION
  Report Type: Report from Study
  Country: JP (occurrence: JP)
  Receive Date: 20130329
  Receipt Date: 20130329
  Transmission Date: 20140127
  Serious: Yes (Hospitalization, Other)
  Sender: FDA-Public Use
  Company Number: JP-009507513-2012SP020776

PATIENT
  Age: 70 Year
  Sex: Male
  Weight: 70 kg

DRUGS (14)
  1. PEGINTRON [Suspect]
     Indication: CHRONIC HEPATITIS C
     Dosage: 1.5 MICROGRAM PER KILOGRAM, QW
     Route: 058
     Dates: start: 20120302, end: 20120309
  2. PEGINTRON [Suspect]
     Dosage: 1.1 MICROGRAM PER KILOGRAM, QW
     Route: 058
     Dates: start: 20120316, end: 20120331
  3. REBETOL [Suspect]
     Indication: CHRONIC HEPATITIS C
     Dosage: 600 MG, QD
     Route: 048
     Dates: start: 20120302, end: 20120323
  4. REBETOL [Suspect]
     Dosage: 400 MG, QD
     Route: 048
     Dates: start: 20120324, end: 20120326
  5. REBETOL [Suspect]
     Dosage: 200 MG, QD
     Dates: start: 20120327, end: 20120330
  6. TELAVIC [Suspect]
     Indication: CHRONIC HEPATITIS C
     Dosage: 2250MG
     Route: 048
     Dates: start: 20120302, end: 20120330
  7. MAINTATE [Suspect]
     Indication: ARRHYTHMIA
     Dosage: 5 MG, QD
     Route: 048
     Dates: start: 20100814
  8. BAYASPIRIN [Suspect]
     Indication: ARRHYTHMIA
     Dosage: 100 MG, QD (FORMULATION POR)
     Route: 048
     Dates: start: 20101225
  9. SUNRYTHM [Suspect]
     Indication: ARRHYTHMIA
     Dosage: 50 MG, QD (FORMULATION POR)
     Route: 048
     Dates: start: 20110917
  10. NORVASC [Suspect]
     Indication: HYPERTENSION
     Dosage: 5 MG, QD (FORMULATION POR)
     Route: 048
     Dates: start: 20120114, end: 20120330
  11. FEBURIC [Suspect]
     Indication: ADVERSE EVENT
     Dosage: 10 MG, QD (FORMULATION POR)
     Route: 048
     Dates: start: 20120313, end: 20120330
  12. PREDONINE [Suspect]
     Indication: ADVERSE EVENT
     Dosage: 60 MG, QD (FORMULATION POR)
     Dates: start: 20120409
  13. PREDONINE [Suspect]
     Dosage: 25 MG, QD (FORMULATION POR)
     Route: 048
  14. BLOPRESS [Concomitant]
     Indication: BLOOD PRESSURE MANAGEMENT
     Dosage: 4 MG, QD (FORMULATION POR)
     Route: 048
     Dates: start: 20100731, end: 20120310

REACTIONS (3)
  - Acute respiratory distress syndrome [Recovering/Resolving]
  - Pneumonia [Recovering/Resolving]
  - Haemoglobin decreased [Recovered/Resolved]
